FAERS Safety Report 18673603 (Version 3)
Quarter: 2021Q1

REPORT INFORMATION
  Report Type: Report from Study
  Country: US (occurrence: US)
  Receive Date: 20201228
  Receipt Date: 20210212
  Transmission Date: 20210419
  Serious: Yes (Other)
  Sender: FDA-Public Use
  Company Number: US-BAYER-2020-281439

PATIENT
  Age: 59 Year
  Sex: Female

DRUGS (1)
  1. STIVARGA [Suspect]
     Active Substance: REGORAFENIB
     Indication: RECTAL CANCER
     Dosage: 160 MG DAILY WITH LOW FAT BREAKFAST FOR 21 DAYS THEN 7 DAYS OFF
     Route: 048

REACTIONS (13)
  - Abnormal loss of weight [Recovered/Resolved]
  - Mucosal inflammation [Not Recovered/Not Resolved]
  - Arteriovenous fistula site haemorrhage [Recovered/Resolved]
  - Neuropathy peripheral [Not Recovered/Not Resolved]
  - Nausea [Not Recovered/Not Resolved]
  - Pain [Recovering/Resolving]
  - Paraesthesia [Not Recovered/Not Resolved]
  - Hypophagia [None]
  - Dizziness [Recovering/Resolving]
  - Nausea [Recovering/Resolving]
  - Fatigue [None]
  - Hypotension [Recovering/Resolving]
  - Mucosal inflammation [Not Recovered/Not Resolved]

NARRATIVE: CASE EVENT DATE: 20201113
